FAERS Safety Report 7659352-1 (Version None)
Quarter: 2011Q3

REPORT INFORMATION
  Report Type: 
  Country: None (occurrence: None)
  Receive Date: 20110805
  Receipt Date: 20110722
  Transmission Date: 20111222
  Serious: Yes (Other)
  Sender: FDA-Public Use
  Company Number: DE-ROCHE-794619

PATIENT
  Sex: Male
  Weight: 67 kg

DRUGS (3)
  1. LEUCOVORIN CALCIUM [Concomitant]
     Indication: RECTAL CANCER METASTATIC
     Dosage: EACH CYCLE DURATION 2 WEEKS
     Route: 042
     Dates: start: 20110321, end: 20110706
  2. BEVACIZUMAB [Suspect]
     Indication: RECTAL CANCER METASTATIC
     Dosage: EACH CYCLE DURATION 2 WEEKS
     Route: 042
     Dates: start: 20110321, end: 20110706
  3. FLUOROURACIL [Concomitant]
     Indication: RECTAL CANCER METASTATIC
     Dosage: EACH CYCLE DURATION 2 WEEKS
     Route: 042
     Dates: start: 20110321, end: 20110706

REACTIONS (4)
  - PALPITATIONS [None]
  - BUNDLE BRANCH BLOCK LEFT [None]
  - EJECTION FRACTION DECREASED [None]
  - DYSPNOEA [None]
